FAERS Safety Report 6150705-X (Version None)
Quarter: 2009Q2

REPORT INFORMATION
  Report Type: 
  Country: None (occurrence: None)
  Receive Date: 20090409
  Receipt Date: 20090408
  Transmission Date: 20091009
  Serious: Yes (Death, Life-Threatening, Hospitalization)
  Sender: FDA-Public Use
  Company Number: PHHY2008IL25651

PATIENT
  Age: 85 Year

DRUGS (5)
  1. SANDOSTATIN LAR [Suspect]
     Indication: ACROMEGALY
     Dosage: 40 MG EVERY 28 DAYS
  2. ANTINEOPLASTIC AGENTS [Concomitant]
  3. TAXOL [Concomitant]
     Dosage: UNK
     Dates: start: 20060701, end: 20061001
  4. CARBOPLATIN [Concomitant]
     Dosage: UNK
     Dates: start: 20060701, end: 20061001
  5. GEMZAR [Concomitant]
     Dosage: UNK
     Dates: start: 20070801

REACTIONS (5)
  - ANAPHYLACTIC REACTION [None]
  - ASCITES [None]
  - HAEMOGLOBIN DECREASED [None]
  - OVARIAN CANCER [None]
  - PARACENTESIS [None]
